FAERS Safety Report 10166344 (Version 3)
Quarter: 2014Q3

REPORT INFORMATION
  Report Type: Report from Study
  Country: US (occurrence: US)
  Receive Date: 20140512
  Receipt Date: 20140710
  Transmission Date: 20150326
  Serious: Yes (Other)
  Sender: FDA-Public Use
  Company Number: US-ROCHE-1398500

PATIENT

DRUGS (1)
  1. DIAZEPAM. [Suspect]
     Active Substance: DIAZEPAM
     Indication: EPILEPSY
     Dosage: AUTOINJECTOR
     Route: 065

REACTIONS (3)
  - Accidental exposure to product [Unknown]
  - Epilepsy [Unknown]
  - Respiratory distress [Recovered/Resolved]
